FAERS Safety Report 14116654 (Version 1)
Quarter: 2017Q4

REPORT INFORMATION
  Report Type: Other
  Country: US (occurrence: US)
  Receive Date: 20171023
  Receipt Date: 20171023
  Transmission Date: 20180321
  Serious: Yes (Other)
  Sender: FDA-Public Use
  Company Number: US-THE PROACTIV LLC-2031204

PATIENT
  Age: 38 Year
  Sex: Female

DRUGS (11)
  1. SIMPONI [Concomitant]
     Active Substance: GOLIMUMAB
  2. ZYRTEC [Concomitant]
     Active Substance: CETIRIZINE HYDROCHLORIDE
  3. DULOXETINE. [Concomitant]
     Active Substance: DULOXETINE
  4. MELOXICAM. [Concomitant]
     Active Substance: MELOXICAM
  5. OTC DAILY VITAMIN SUPPLEMENTS [Concomitant]
  6. PROACTIV REPAIRING TREATMENT [Suspect]
     Active Substance: BENZOYL PEROXIDE
     Route: 061
     Dates: start: 20170831, end: 20170921
  7. XANAX [Concomitant]
     Active Substance: ALPRAZOLAM
  8. AMITRIPTYLINE [Concomitant]
     Active Substance: AMITRIPTYLINE
  9. METHOTREXATE. [Concomitant]
     Active Substance: METHOTREXATE
  10. PROACTIV SKIN PURIFYING MASK [Suspect]
     Active Substance: SULFUR
     Route: 061
     Dates: start: 20170831, end: 20170921
  11. PROACTIV RENEWING CLEANSER [Suspect]
     Active Substance: BENZOYL PEROXIDE
     Indication: ACNE
     Route: 061
     Dates: start: 20170831, end: 20170921

REACTIONS (2)
  - Angioedema [Recovered/Resolved]
  - Pharyngeal oedema [Recovered/Resolved]

NARRATIVE: CASE EVENT DATE: 201709
